FAERS Safety Report 19498064 (Version 2)
Quarter: 2021Q4

REPORT INFORMATION
  Report Type: Spontaneous
  Country: US (occurrence: US)
  Receive Date: 20210706
  Receipt Date: 20211004
  Transmission Date: 20220303
  Serious: Yes (Hospitalization, Other)
  Sender: FDA-Public Use
  Company Number: US-CELGENE-USA-20210607781

PATIENT
  Age: 75 Year
  Sex: Male
  Weight: 85.81 kg

DRUGS (11)
  1. AZACITIDINE [Suspect]
     Active Substance: AZACITIDINE
     Indication: Myelodysplastic syndrome
     Dosage: 75 MILLIGRAM
     Route: 041
     Dates: start: 20210322
  2. JANUMET [Concomitant]
     Active Substance: METFORMIN HYDROCHLORIDE\SITAGLIPTIN PHOSPHATE
     Indication: Type 2 diabetes mellitus
     Dosage: 1000/50MG
     Route: 048
     Dates: start: 2006
  3. Lantus Insuline [Concomitant]
     Indication: Type 2 diabetes mellitus
     Dosage: 60 IU (INTERNATIONAL UNIT)
     Route: 058
     Dates: start: 2006
  4. Lantus Insuline [Concomitant]
     Dosage: 50 UNIT
     Route: 058
     Dates: start: 2006
  5. ASPIRIN [Concomitant]
     Active Substance: ASPIRIN
     Indication: Coagulopathy
     Dosage: 81 MILLIGRAM
     Route: 048
     Dates: start: 2015
  6. SYNTHROID [Concomitant]
     Active Substance: LEVOTHYROXINE SODIUM
     Indication: Thyroid disorder
     Dosage: 81 MICROGRAM
     Route: 048
     Dates: start: 2005
  7. METOPROLOL [Concomitant]
     Active Substance: METOPROLOL
     Indication: Thyroid disorder
     Dosage: 100 MILLIGRAM
     Route: 048
     Dates: start: 2001
  8. METOPROLOL [Concomitant]
     Active Substance: METOPROLOL
     Dosage: 50 MILLIGRAM
     Route: 048
     Dates: start: 2001
  9. FOLIC ACID [Concomitant]
     Active Substance: FOLIC ACID
     Indication: Anaemia
     Dosage: 1 MILLIGRAM
     Route: 048
     Dates: start: 2020
  10. VITAMINS [Concomitant]
     Active Substance: VITAMINS
     Indication: Nutritional supplementation
     Route: 048
     Dates: start: 2020
  11. VITAMIN E [Concomitant]
     Active Substance: .ALPHA.-TOCOPHEROL
     Indication: Nutritional supplementation
     Dosage: 5000 UNIT
     Route: 048
     Dates: start: 2020

REACTIONS (1)
  - Anaemia [Recovered/Resolved]

NARRATIVE: CASE EVENT DATE: 20210609
